FAERS Safety Report 16385162 (Version 1)
Quarter: 2019Q2

REPORT INFORMATION
  Report Type: Report from Study
  Country: IN (occurrence: IN)
  Receive Date: 20190603
  Receipt Date: 20190603
  Transmission Date: 20190711
  Serious: Yes (Hospitalization)
  Sender: FDA-Public Use
  Company Number: IN-EISAI MEDICAL RESEARCH-EC-2019-057093

PATIENT
  Age: 75 Year
  Sex: Male

DRUGS (1)
  1. LENVIMA [Suspect]
     Active Substance: LENVATINIB
     Indication: THYROID CANCER
     Route: 048
     Dates: start: 20181110, end: 20190501

REACTIONS (2)
  - Diarrhoea [Recovered/Resolved]
  - Renal injury [Recovered/Resolved]

NARRATIVE: CASE EVENT DATE: 20190501
